FAERS Safety Report 7390763-8 (Version None)
Quarter: 2011Q2

REPORT INFORMATION
  Report Type: 
  Country: None (occurrence: None)
  Receive Date: 20110404
  Receipt Date: 20110324
  Transmission Date: 20111010
  Serious: No
  Sender: FDA-Public Use
  Company Number: US-BIOGENIDEC-2011BI011422

PATIENT
  Age: 34 Year
  Sex: Female

DRUGS (3)
  1. AVONEX [Concomitant]
     Indication: MULTIPLE SCLEROSIS
     Route: 030
  2. TYSABRI [Suspect]
     Indication: MULTIPLE SCLEROSIS
     Route: 042
     Dates: start: 20090406, end: 20100601
  3. TYSABRI [Suspect]
     Route: 042
     Dates: start: 20061229, end: 20080814

REACTIONS (1)
  - DRUG SPECIFIC ANTIBODY PRESENT [None]
